FAERS Safety Report 7476273-8 (Version None)
Quarter: 2011Q2

REPORT INFORMATION
  Report Type: 
  Country: None (occurrence: None)
  Receive Date: 20110512
  Receipt Date: 20110412
  Transmission Date: 20111010
  Serious: Yes (Death, Hospitalization, Other)
  Sender: FDA-Public Use
  Company Number: US-BAYER-2011-024073

PATIENT
  Age: 22 Year
  Sex: Female
  Weight: 58.957 kg

DRUGS (1)
  1. YAZ [Suspect]
     Indication: PRODUCT USED FOR UNKNOWN INDICATION
     Dosage: UNK

REACTIONS (9)
  - PULMONARY EMBOLISM [None]
  - RESPIRATORY FAILURE [None]
  - PULMONARY INFARCTION [None]
  - ACUTE LUNG INJURY [None]
  - CARDIOGENIC SHOCK [None]
  - PAIN [None]
  - PULMONARY HYPERTENSION [None]
  - HYPERKALAEMIA [None]
  - RESPIRATORY DISTRESS [None]
